FAERS Safety Report 6018720-4 (Version None)
Quarter: 2008Q4

REPORT INFORMATION
  Report Type: 
  Country: None (occurrence: None)
  Receive Date: 20081222
  Receipt Date: 20081209
  Transmission Date: 20090506
  Serious: Yes (Hospitalization, Other)
  Sender: FDA-Public Use
  Company Number: 232794K08USA

PATIENT
  Age: 47 Year
  Sex: Female

DRUGS (1)
  1. REBIF [Suspect]
     Indication: MULTIPLE SCLEROSIS
     Dosage: 44 MCG, 3 IN 1 WEEKS, SUBCUTANEOUS, SUBCUTANEOUS
     Route: 058
     Dates: start: 20061201, end: 20081101

REACTIONS (6)
  - ABDOMINAL DISTENSION [None]
  - FAT TISSUE INCREASED [None]
  - INJECTION SITE HYPERTROPHY [None]
  - INJECTION SITE PAIN [None]
  - SURGICAL FAILURE [None]
  - UTERINE HAEMORRHAGE [None]
